FAERS Safety Report 21206329 (Version 1)
Quarter: 2022Q3

REPORT INFORMATION
  Report Type: Report from Study
  Country: US (occurrence: US)
  Receive Date: 20220812
  Receipt Date: 20220812
  Transmission Date: 20221026
  Serious: Yes (Death)
  Sender: FDA-Public Use
  Company Number: US-PFIZER INC-PV202200039371

PATIENT
  Age: 85 Year
  Sex: Female

DRUGS (4)
  1. PAXLOVID [Suspect]
     Active Substance: NIRMATRELVIR\RITONAVIR
     Indication: COVID-19 treatment
     Dosage: UNK
  2. IMBRUVICA [Suspect]
     Active Substance: IBRUTINIB
     Indication: Chronic lymphocytic leukaemia
     Dosage: 280 MG, CYCLIC (280MG DAILY FOR 14 DAYS THEN 420MG DAILY FOR 14 DAYS (140 MG,1 IN 1 D))
     Route: 048
     Dates: start: 20141113, end: 20141226
  3. IMBRUVICA [Suspect]
     Active Substance: IBRUTINIB
     Dosage: 420 MG, DAILY
     Route: 048
     Dates: start: 20141226, end: 20180602
  4. IMBRUVICA [Suspect]
     Active Substance: IBRUTINIB
     Dosage: 420 MG
     Route: 048
     Dates: start: 20180602, end: 20220802

REACTIONS (3)
  - Pneumonia [Fatal]
  - Disease recurrence [Fatal]
  - COVID-19 [Fatal]
